FAERS Safety Report 4664991-6 (Version None)
Quarter: 2005Q2

REPORT INFORMATION
  Report Type: 
  Country: None (occurrence: None)
  Receive Date: 20050517
  Receipt Date: 20050517
  Transmission Date: 20051028
  Serious: Yes (Other)
  Sender: FDA-Public Use
  Company Number: None

PATIENT
  Age: 70 Year
  Sex: Female

DRUGS (2)
  1. EPINEPHRINE [Suspect]
     Indication: LOCAL ANAESTHESIA
     Dosage: ONE DOSE
     Dates: start: 20011101
  2. NOVOCAIN [Suspect]

REACTIONS (1)
  - TREMOR [None]
